FAERS Safety Report 16684330 (Version 1)
Quarter: 2019Q3

REPORT INFORMATION
  Report Type: Spontaneous
  Country: NL (occurrence: NL)
  Receive Date: 20190808
  Receipt Date: 20190808
  Transmission Date: 20191004
  Serious: Yes (Life-Threatening, Hospitalization)
  Sender: FDA-Public Use
  Company Number: NL-TEVA-2019-NL-1090196

PATIENT
  Age: 68 Year
  Sex: Male

DRUGS (12)
  1. SALBUTAMOL AEROSOL 100UG/DO 200DO INHALATOR (INHALATIE), [Concomitant]
     Dosage: ZO NODIG 4 X PER DAG 1 DOSIS, ZO NODIG;
  2. CALCIUMCARB/COLECALC KAUWTB 1,25G/800IE (500MG CA) (ORAAL), [Concomitant]
     Dosage: 1 X PER DAG 1 STUK
  3. RABEPRAZOLE [Suspect]
     Active Substance: RABEPRAZOLE
     Indication: PRODUCT USED FOR UNKNOWN INDICATION
     Dosage: 2D20MG
     Dates: start: 2018, end: 20190711
  4. LOSARTAN TABLET FO 100MG (ORAAL), [Concomitant]
     Dosage: 1 X PER DAG 100 MILLIGRAM
  5. RABEPRAZOL TABLET MSR 20MG (ORAAL) [Concomitant]
     Dosage: 2 X PER DAG 20 MILLIGRAM
  6. ACLIDINIUM/FORMOTEROL INHPDR 340/12UG/DO FL 60DO (INHALATIE), [Concomitant]
     Dosage: 2 X PER DAG 1 DOSIS
  7. METAMUCIL SKVR LEMON POEDER 3,4G IN SACHET (ORAAL), [Concomitant]
     Dosage: 1 X PER DAG 1 STUK
  8. DICLOFENAC-NATRIUM TABLET MSR 50MG (ORAAL), [Concomitant]
     Dosage: ZO NODIG 1 X PER DAG 50 MILLIGRAM, ZO NODIG
  9. MEBEVERINE CAPSULE MGA 200MG (ORAAL) [Concomitant]
     Dosage: 1 X PER DAG 200 MILLIGRAM
  10. CLONAZEPAM TABLET 0,5MG (ORAAL), [Concomitant]
     Dosage: 1 X PER DAG 1 MILLIGRAM
  11. CHLOORTALIDON TABLET 25MG (ORAAL), [Concomitant]
     Dosage: 1 X PER DAG 25 MILLIGRAM
  12. PARACETAMOL TEVA TABLET 500MG (ORAAL) [Concomitant]
     Dosage: ZO NODIG 3 X PER DAG 1000 MILLIGRAM ZELFZORGMIDDEL, ZO NODIG

REACTIONS (2)
  - Hypomagnesaemia [Recovering/Resolving]
  - Hypocalcaemia [Recovering/Resolving]

NARRATIVE: CASE EVENT DATE: 2019
